FAERS Safety Report 11525038 (Version 2)
Quarter: 2025Q4

REPORT INFORMATION
  Report Type: Report from Study
  Country: US (occurrence: US)
  Receive Date: 20150918
  Receipt Date: 20251031
  Transmission Date: 20260118
  Serious: Yes (Other)
  Sender: TAKEDA
  Company Number: US-BAXALTA-2015BLT001774

PATIENT
  Age: 45 Year
  Sex: Female

DRUGS (2)
  1. HUMAN IMMUNOGLOBULIN G [Suspect]
     Active Substance: HUMAN IMMUNOGLOBULIN G
     Indication: Immunodeficiency common variable
     Dosage: UNK
  2. HUMAN IMMUNOGLOBULIN G [Suspect]
     Active Substance: HUMAN IMMUNOGLOBULIN G
     Indication: Primary immunodeficiency syndrome
     Dosage: UNK UNK, MONTHLY

REACTIONS (7)
  - Thrombosis [Not Recovered/Not Resolved]
  - Infection [Not Recovered/Not Resolved]
  - Alopecia [Not Recovered/Not Resolved]
  - Increased tendency to bruise [Not Recovered/Not Resolved]
  - Feeling abnormal [Unknown]
  - Gitelman^s syndrome [Unknown]
  - Headache [Not Recovered/Not Resolved]
